FAERS Safety Report 20351563 (Version 2)
Quarter: 2022Q1

REPORT INFORMATION
  Report Type: Report from Study
  Country: IN (occurrence: IN)
  Receive Date: 20220119
  Receipt Date: 20220126
  Transmission Date: 20220423
  Serious: Yes (Death, Life-Threatening, Hospitalization)
  Sender: FDA-Public Use
  Company Number: IN-PFIZER INC-202101872733

PATIENT
  Age: 38 Year
  Sex: Female
  Weight: 69.6 kg

DRUGS (4)
  1. GLASDEGIB [Suspect]
     Active Substance: GLASDEGIB
     Indication: Acute myeloid leukaemia
     Dosage: 100 MG, 1X/DAY
     Route: 048
     Dates: start: 20211126
  2. ACIVIR DT [Concomitant]
     Indication: Antiviral treatment
     Dosage: 200 MG, 2X/DAY
     Route: 048
     Dates: start: 20210712
  3. SEPTRAN DS [Concomitant]
     Indication: Prophylaxis
     Dosage: 160 MG, 2X/DAY
     Route: 048
     Dates: start: 20210712
  4. CYTARABINE [Concomitant]
     Active Substance: CYTARABINE
     Indication: Acute myeloid leukaemia
     Dosage: UNK

REACTIONS (4)
  - Pneumonia [Fatal]
  - Febrile neutropenia [Fatal]
  - Septic shock [Fatal]
  - Neoplasm progression [Fatal]

NARRATIVE: CASE EVENT DATE: 20211201
